FAERS Safety Report 13631447 (Version 1)
Quarter: 2017Q2

REPORT INFORMATION
  Report Type: Spontaneous
  Country: US (occurrence: US)
  Receive Date: 20170531
  Receipt Date: 20170531
  Transmission Date: 20170830
  Serious: No
  Sender: FDA-Public Use
  Company Number: US-ASTELLAS-1384538

PATIENT
  Age: 65 Year
  Sex: Female

DRUGS (1)
  1. TARCEVA [Suspect]
     Active Substance: ERLOTINIB HYDROCHLORIDE
     Indication: PRODUCT USED FOR UNKNOWN INDICATION
     Dosage: DAILY
     Route: 065
     Dates: start: 20131120

REACTIONS (5)
  - Dry skin [Recovering/Resolving]
  - Alopecia [Unknown]
  - Limb discomfort [Unknown]
  - Dermatitis acneiform [Recovering/Resolving]
  - Stomatitis [Recovering/Resolving]
